FAERS Safety Report 6216759-7 (Version None)
Quarter: 2009Q2

REPORT INFORMATION
  Report Type: 
  Country: None (occurrence: None)
  Receive Date: 20090603
  Receipt Date: 20090603
  Transmission Date: 20091009
  Serious: No
  Sender: FDA-Public Use
  Company Number: None

PATIENT
  Age: 48 Year
  Sex: Female
  Weight: 61.2356 kg

DRUGS (2)
  1. MUCINEX DM [Suspect]
     Indication: SEASONAL ALLERGY
     Dosage: 1 12 HOURS PO
     Route: 048
     Dates: start: 20090602, end: 20090602
  2. MUCINEX DM [Suspect]
     Indication: SEASONAL ALLERGY
     Dosage: 1 OR 2 12 HOURS PO
     Route: 048
     Dates: start: 20090501, end: 20090601

REACTIONS (5)
  - FEELING ABNORMAL [None]
  - INCORRECT DOSE ADMINISTERED [None]
  - PRODUCT LABEL CONFUSION [None]
  - PRODUCT NAME CONFUSION [None]
  - VERTIGO [None]
